FAERS Safety Report 5194418-X (Version None)
Quarter: 2006Q4

REPORT INFORMATION
  Report Type: 
  Country: None (occurrence: None)
  Receive Date: 20061228
  Receipt Date: 20060825
  Transmission Date: 20070319
  Serious: Yes (Death, Hospitalization, Other)
  Sender: FDA-Public Use
  Company Number: US-PFIZER INC-2006105646

PATIENT
  Sex: Female
  Weight: 63.5 kg

DRUGS (10)
  1. LYRICA [Suspect]
     Indication: ARTHRALGIA
     Route: 048
  2. LYRICA [Suspect]
     Indication: OSTEOARTHRITIS
  3. NEXIUM [Concomitant]
  4. AVALIDE [Concomitant]
  5. DYNACIRC [Concomitant]
  6. TOPROL-XL [Concomitant]
  7. SONATA [Concomitant]
  8. TENIDAP SODIUM [Concomitant]
  9. TYLENOL [Concomitant]
  10. ASPIRIN [Concomitant]

REACTIONS (12)
  - ABDOMINAL INFECTION [None]
  - ABDOMINAL PAIN [None]
  - ANOREXIA [None]
  - CEREBELLAR INFARCTION [None]
  - CONFUSIONAL STATE [None]
  - HEADACHE [None]
  - INSOMNIA [None]
  - NAUSEA [None]
  - NECK PAIN [None]
  - RENAL FAILURE [None]
  - SEPSIS [None]
  - THROMBOTIC THROMBOCYTOPENIC PURPURA [None]
